FAERS Safety Report 16183024 (Version 2)
Quarter: 2019Q3

REPORT INFORMATION
  Report Type: Spontaneous
  Country: None (occurrence: US)
  Receive Date: 20190411
  Receipt Date: 20190710
  Transmission Date: 20191004
  Serious: Yes (Other)
  Sender: FDA-Public Use
  Company Number: US-ACHAOGEN INC-US-ACHN-19-00003

PATIENT
  Age: 64 Year
  Sex: Male
  Weight: 77.18 kg

DRUGS (3)
  1. LOSARTAN. [Concomitant]
     Active Substance: LOSARTAN
     Indication: PRODUCT USED FOR UNKNOWN INDICATION
  2. VALACYCLOVIR [Concomitant]
     Active Substance: VALACYCLOVIR HYDROCHLORIDE
     Indication: PRODUCT USED FOR UNKNOWN INDICATION
  3. ZEMDRI [Suspect]
     Active Substance: PLAZOMICIN
     Indication: OSTEOMYELITIS

REACTIONS (5)
  - Nausea [Unknown]
  - Product use in unapproved indication [Recovered/Resolved]
  - Vomiting [Unknown]
  - Blood creatinine increased [Recovered/Resolved]
  - Dehydration [Unknown]
